FAERS Safety Report 6811385-0 (Version None)
Quarter: 2010Q2

REPORT INFORMATION
  Report Type: 
  Country: None (occurrence: None)
  Receive Date: 20100630
  Receipt Date: 20100325
  Transmission Date: 20101027
  Serious: No
  Sender: FDA-Public Use
  Company Number: US-AMGEN-KDL402166

PATIENT
  Sex: Male
  Weight: 93.1 kg

DRUGS (5)
  1. PROCRIT [Suspect]
     Indication: RENAL FAILURE CHRONIC
  2. UNSPECIFIED ANTIHYPERTENSIVE AGENT [Concomitant]
  3. INSULIN [Concomitant]
  4. BYETTA [Concomitant]
  5. LASIX [Concomitant]

REACTIONS (2)
  - HAEMATOCHEZIA [None]
  - HAEMOGLOBIN DECREASED [None]
